FAERS Safety Report 7816992-4 (Version None)
Quarter: 2011Q4

REPORT INFORMATION
  Report Type: 
  Country: None (occurrence: None)
  Receive Date: 20111017
  Receipt Date: 20111003
  Transmission Date: 20120403
  Serious: Yes (Death)
  Sender: FDA-Public Use
  Company Number: JP-NOVOPROD-336592

PATIENT

DRUGS (1)
  1. NOVOSEVEN [Suspect]
     Indication: HAEMOSTASIS
     Dosage: 7 MG, QD
     Route: 042
     Dates: start: 20110921, end: 20111001

REACTIONS (1)
  - DEATH [None]
